FAERS Safety Report 19014214 (Version 1)
Quarter: 2021Q1

REPORT INFORMATION
  Report Type: Spontaneous
  Country: US (occurrence: US)
  Receive Date: 20210316
  Receipt Date: 20210316
  Transmission Date: 20210420
  Serious: Yes (Hospitalization)
  Sender: FDA-Public Use
  Company Number: US-JNJFOC-A-US2017-160146

PATIENT
  Age: 69 Year
  Sex: Female
  Weight: 88.89 kg

DRUGS (3)
  1. CELLCEPT [Suspect]
     Active Substance: MYCOPHENOLATE MOFETIL\MYCOPHENOLATE MOFETIL HYDROCHLORIDE
     Indication: PRODUCT USED FOR UNKNOWN INDICATION
     Route: 065
  2. OPSUMIT [Suspect]
     Active Substance: MACITENTAN
     Indication: PULMONARY HYPERTENSION
     Route: 048
     Dates: start: 20111130
  3. OFEV [Concomitant]
     Active Substance: NINTEDANIB

REACTIONS (12)
  - Cardiac failure congestive [Unknown]
  - Hospitalisation [Unknown]
  - Sepsis [Unknown]
  - Anaemia [Recovering/Resolving]
  - Dyspnoea [Unknown]
  - Nephropathy [Unknown]
  - Restless legs syndrome [Unknown]
  - Pain [Unknown]
  - Haemoglobin decreased [Recovering/Resolving]
  - Nasopharyngitis [Unknown]
  - Insomnia [Unknown]
  - Iron deficiency anaemia [Recovering/Resolving]
